FAERS Safety Report 7772706-8 (Version None)
Quarter: 2011Q3

REPORT INFORMATION
  Report Type: 
  Country: None (occurrence: None)
  Receive Date: 20110922
  Receipt Date: 20100113
  Transmission Date: 20111222
  Serious: No
  Sender: FDA-Public Use
  Company Number: US-ASTRAZENECA-2009UW10778

PATIENT
  Age: 15574 Day
  Sex: Male
  Weight: 119.7 kg

DRUGS (5)
  1. ABILIFY [Concomitant]
     Route: 048
     Dates: start: 20051208
  2. CYPROHEPTADINE HCL [Concomitant]
     Dates: start: 20051208
  3. SEROQUEL [Suspect]
     Dosage: 100 MG-400 MG
     Route: 048
     Dates: start: 20050211, end: 20051208
  4. BUSPAR [Concomitant]
     Indication: ANXIETY
     Route: 048
     Dates: start: 20050211
  5. PROZAC [Concomitant]
     Route: 048
     Dates: start: 20050211

REACTIONS (4)
  - POOR QUALITY SLEEP [None]
  - WEIGHT INCREASED [None]
  - INCREASED APPETITE [None]
  - TYPE 2 DIABETES MELLITUS [None]
